FAERS Safety Report 6489006-9 (Version None)
Quarter: 2009Q4

REPORT INFORMATION
  Report Type: 
  Country: None (occurrence: None)
  Receive Date: 20091210
  Receipt Date: 20090921
  Transmission Date: 20100525
  Serious: No
  Sender: FDA-Public Use
  Company Number: US-AMGEN-KDL365741

PATIENT
  Sex: Female
  Weight: 55.4 kg

DRUGS (7)
  1. ENBREL [Suspect]
     Indication: RHEUMATOID ARTHRITIS
     Route: 058
     Dates: start: 20090201, end: 20090920
  2. BONIVA [Concomitant]
     Dates: start: 20050101
  3. FOLIC ACID [Concomitant]
     Dates: start: 20040101
  4. MOBIC [Concomitant]
     Dates: start: 20081201
  5. ZETIA [Concomitant]
     Dates: start: 20090701
  6. DARVOCET-N 100 [Concomitant]
     Dates: start: 20060101
  7. TYLENOL (CAPLET) [Concomitant]
     Dates: start: 20080101

REACTIONS (14)
  - CHEST PAIN [None]
  - CONTUSION [None]
  - DERMATITIS ALLERGIC [None]
  - DYSPEPSIA [None]
  - EYE SWELLING [None]
  - FATIGUE [None]
  - INJECTION SITE ERYTHEMA [None]
  - INJECTION SITE HAEMATOMA [None]
  - INJECTION SITE REACTION [None]
  - INJECTION SITE SWELLING [None]
  - LIP SWELLING [None]
  - RASH PAPULAR [None]
  - RASH PRURITIC [None]
  - RHEUMATOID ARTHRITIS [None]
